FAERS Safety Report 23846265 (Version 1)
Quarter: 2024Q2

REPORT INFORMATION
  Report Type: Report from Study
  Country: US (occurrence: US)
  Receive Date: 20240512
  Receipt Date: 20240512
  Transmission Date: 20240716
  Serious: Yes (Other)
  Sender: FDA-Public Use
  Company Number: US-ABBVIE-5752993

PATIENT
  Sex: Female

DRUGS (1)
  1. HUMIRA [Suspect]
     Active Substance: ADALIMUMAB
     Indication: Psoriatic arthropathy
     Route: 058
     Dates: start: 20190603

REACTIONS (9)
  - Hip surgery [Recovering/Resolving]
  - Alopecia [Unknown]
  - Gallbladder operation [Recovered/Resolved]
  - Osteoporosis [Unknown]
  - Female reproductive tract disorder [Unknown]
  - Renal surgery [Recovered/Resolved]
  - Mammogram abnormal [Unknown]
  - Pyrexia [Recovered/Resolved]
  - Urinary retention [Recovered/Resolved]

NARRATIVE: CASE EVENT DATE: 20230101
